FAERS Safety Report 9140224 (Version 1)
Quarter: 2013Q1

REPORT INFORMATION
  Report Type: Spontaneous
  Country: US (occurrence: US)
  Receive Date: 20130305
  Receipt Date: 20130305
  Transmission Date: 20140127
  Serious: No
  Sender: FDA-Public Use
  Company Number: US-009507513-1303USA001293

PATIENT
  Age: 27 Year
  Sex: Female

DRUGS (1)
  1. NEXPLANON [Suspect]
     Dosage: , 1 YEAR AGO UNK
     Route: 059
     Dates: start: 201203

REACTIONS (1)
  - Contusion [Not Recovered/Not Resolved]
